FAERS Safety Report 4839238-8 (Version None)
Quarter: 2005Q4

REPORT INFORMATION
  Report Type: 
  Country: None (occurrence: None)
  Receive Date: 20051129
  Receipt Date: 20041005
  Transmission Date: 20060501
  Serious: No
  Sender: FDA-Public Use
  Company Number: US-GLAXOSMITHKLINE-A0528547A

PATIENT
  Age: 60 Year
  Sex: Male

DRUGS (5)
  1. WELLBUTRIN SR [Suspect]
     Indication: DEPRESSION
     Dosage: 200MG TWICE PER DAY
     Route: 048
  2. CRESTOR [Suspect]
     Route: 065
  3. RISPERDAL [Concomitant]
  4. PAXIL [Concomitant]
  5. WELLBUTRIN SR [Concomitant]

REACTIONS (1)
  - HYPERHIDROSIS [None]
